FAERS Safety Report 7420451-0 (Version None)
Quarter: 2011Q2

REPORT INFORMATION
  Report Type: 
  Country: None (occurrence: None)
  Receive Date: 20110418
  Receipt Date: 20110411
  Transmission Date: 20111010
  Serious: No
  Sender: FDA-Public Use
  Company Number: US-PFIZER INC-2011080180

PATIENT
  Sex: Female

DRUGS (1)
  1. PREMPRO [Suspect]
     Indication: MENOPAUSAL SYMPTOMS
     Dosage: UNK

REACTIONS (2)
  - METRORRHAGIA [None]
  - DRUG INEFFECTIVE [None]
